FAERS Safety Report 9383732 (Version 2)
Quarter: 2013Q3

REPORT INFORMATION
  Report Type: Spontaneous
  Country: FR (occurrence: FR)
  Receive Date: 20130704
  Receipt Date: 20130906
  Transmission Date: 20140515
  Serious: Yes (Other)
  Sender: FDA-Public Use
  Company Number: FR-AMGEN-FRASP2013046658

PATIENT
  Age: 79 Year
  Sex: Male

DRUGS (2)
  1. VECTIBIX [Suspect]
     Indication: ADENOCARCINOMA OF COLON
     Dosage: 360 MG, 1 IN 1 CYCLE
     Route: 042
     Dates: start: 20130328
  2. VECTIBIX [Suspect]
     Indication: METASTASES TO LIVER

REACTIONS (2)
  - Toxic skin eruption [Recovering/Resolving]
  - Folliculitis [Recovering/Resolving]
